FAERS Safety Report 16803156 (Version 1)
Quarter: 2019Q3

REPORT INFORMATION
  Report Type: Spontaneous
  Country: IT (occurrence: IT)
  Receive Date: 20190913
  Receipt Date: 20190913
  Transmission Date: 20191005
  Serious: Yes (Hospitalization)
  Sender: FDA-Public Use
  Company Number: IT-LUPIN PHARMACEUTICALS INC.-2019-05722

PATIENT
  Age: 10 Year
  Sex: Female

DRUGS (1)
  1. LEVETIRACETAM. [Suspect]
     Active Substance: LEVETIRACETAM
     Indication: PARTIAL SEIZURES
     Dosage: 1750 MILLIGRAM/KILOGRAM, QD
     Route: 048
     Dates: start: 20181217, end: 20190220

REACTIONS (4)
  - Mood altered [Recovering/Resolving]
  - Depressed mood [Recovering/Resolving]
  - Somnolence [Recovering/Resolving]
  - Drug ineffective [Unknown]

NARRATIVE: CASE EVENT DATE: 20181220
